FAERS Safety Report 9034722 (Version 1)
Quarter: 2013Q1

REPORT INFORMATION
  Report Type: Spontaneous
  Country: GB (occurrence: None)
  Receive Date: 20130111
  Receipt Date: 20130111
  Transmission Date: 20140127
  Serious: Yes (Other)
  Sender: FDA-Public Use
  Company Number: ENT 2013-0001

PATIENT
  Age: 76 Year
  Sex: Female

DRUGS (17)
  1. CONTESS (ENTACAPONE) [Suspect]
     Indication: PARKINSON^S DISEASE
     Dosage: (200 MG,3 IN 1 D)
     Dates: start: 20121204, end: 20121210
  2. ASPIRIN [Concomitant]
  3. ATORVASTATIN [Concomitant]
  4. AZILECT [Concomitant]
  5. BISOPROLOL [Concomitant]
  6. CO-BENELDOPA [Concomitant]
  7. DIAZEPAM [Concomitant]
  8. DOMPERIDONE [Concomitant]
  9. GABAPENTIN [Concomitant]
  10. ISOSORBIDE MONONITRATE [Concomitant]
  11. LEVOTHYROXINE [Concomitant]
  12. MADOPAR [Concomitant]
  13. METHOCARBAMOL [Concomitant]
  14. MIRTAZAPINE [Concomitant]
  15. OMEPRAZOLE [Concomitant]
  16. ROPINIROLE [Concomitant]
  17. ZOPICLONE [Concomitant]

REACTIONS (1)
  - Dystonia [None]
